FAERS Safety Report 4970438-2 (Version None)
Quarter: 2006Q2

REPORT INFORMATION
  Report Type: 
  Country: None (occurrence: None)
  Receive Date: 20060406
  Receipt Date: 20060331
  Transmission Date: 20061013
  Serious: Yes (Other)
  Sender: FDA-Public Use
  Company Number: 2006044143

PATIENT
  Age: 58 Year
  Sex: Male

DRUGS (1)
  1. XANAX [Suspect]
     Indication: PANIC DISORDER
     Dosage: 1 IN 1 D

REACTIONS (2)
  - DRUG DEPENDENCE [None]
  - DRUG TOLERANCE [None]
